FAERS Safety Report 22164620 (Version 1)
Quarter: 2023Q2

REPORT INFORMATION
  Report Type: Spontaneous
  Country: US (occurrence: US)
  Receive Date: 20230403
  Receipt Date: 20230403
  Transmission Date: 20230722
  Serious: Yes (Other)
  Sender: FDA-Public Use
  Company Number: US-CIPLA LTD.-2022US07173

PATIENT

DRUGS (1)
  1. SERTRALINE [Suspect]
     Active Substance: SERTRALINE HYDROCHLORIDE
     Dosage: UNK
     Route: 063

REACTIONS (5)
  - Haematochezia [Not Recovered/Not Resolved]
  - Exposure via breast milk [Unknown]
  - Faeces discoloured [Not Recovered/Not Resolved]
  - Mucous stools [Not Recovered/Not Resolved]
  - Flatulence [Not Recovered/Not Resolved]
